FAERS Safety Report 10612961 (Version 2)
Quarter: 2014Q4

REPORT INFORMATION
  Report Type: Spontaneous
  Country: US (occurrence: US)
  Receive Date: 20141127
  Receipt Date: 20141212
  Transmission Date: 20150529
  Serious: Yes (Other)
  Sender: FDA-Public Use
  Company Number: US-AMGEN-USASP2014090709

PATIENT
  Age: 63 Year
  Sex: Female

DRUGS (1)
  1. PROLIA [Suspect]
     Active Substance: DENOSUMAB
     Indication: PRODUCT USED FOR UNKNOWN INDICATION
     Dosage: UNK
     Route: 065

REACTIONS (9)
  - Migraine [Unknown]
  - Ill-defined disorder [Unknown]
  - Monoplegia [Recovered/Resolved]
  - Injection site nerve damage [Unknown]
  - Injection site pain [Unknown]
  - Disorientation [Unknown]
  - Tremor [Unknown]
  - Pain in extremity [Unknown]
  - Balance disorder [Unknown]

NARRATIVE: CASE EVENT DATE: 20141119
